FAERS Safety Report 7626331-X (Version None)
Quarter: 2011Q3

REPORT INFORMATION
  Report Type: 
  Country: None (occurrence: None)
  Receive Date: 20110721
  Receipt Date: 20110715
  Transmission Date: 20111222
  Serious: Yes (Death, Life-Threatening, Hospitalization)
  Sender: FDA-Public Use
  Company Number: PHHO2009AT07404

PATIENT
  Sex: Female
  Weight: 88 kg

DRUGS (1)
  1. ILARIS [Suspect]
     Indication: RHEUMATOID ARTHRITIS
     Dosage: 750 MG
     Route: 058
     Dates: start: 20070628, end: 20090427

REACTIONS (5)
  - INFECTIOUS PERITONITIS [None]
  - DIVERTICULITIS [None]
  - DIVERTICULUM [None]
  - INTESTINAL PERFORATION [None]
  - PERIDIVERTICULITIS [None]
